FAERS Safety Report 7073314-7 (Version None)
Quarter: 2010Q4

REPORT INFORMATION
  Report Type: 
  Country: None (occurrence: None)
  Receive Date: 20101029
  Receipt Date: 20100527
  Transmission Date: 20110411
  Serious: No
  Sender: FDA-Public Use
  Company Number: A0861710A

PATIENT
  Age: 56 Year
  Sex: Male

DRUGS (2)
  1. ADVAIR DISKUS 100/50 [Suspect]
     Indication: WHEEZING
     Dosage: 1PUFF TWICE PER DAY
     Route: 055
     Dates: start: 20100525
  2. PROVENTIL [Concomitant]

REACTIONS (2)
  - ANXIETY [None]
  - TREMOR [None]
